FAERS Safety Report 8820092 (Version 1)
Quarter: 2012Q4

REPORT INFORMATION
  Report Type: 
  Country: DE (occurrence: DE)
  Receive Date: 20121001
  Receipt Date: 20121001
  Transmission Date: 20130627
  Serious: Yes (Hospitalization)
  Sender: FDA-Public Use
  Company Number: DE-VERTEX PHARMACEUTICAL INC.-2012-021759

PATIENT
  Age: 50 Year
  Sex: Male

DRUGS (3)
  1. INCIVO [Suspect]
     Indication: HEPATITIS C
     Dosage: weekly
     Route: 048
     Dates: start: 20111025, end: 20111220
  2. PEGASYS [Suspect]
     Indication: HEPATITIS C
     Dosage: weekly
     Route: 058
     Dates: start: 20111025, end: 20111220
  3. COPEGUS [Suspect]
     Indication: HEPATITIS C
     Dosage: Dosage Form: Unspecified
     Route: 048
     Dates: start: 20111215, end: 20111220

REACTIONS (2)
  - Anaemia [Not Recovered/Not Resolved]
  - Drug eruption [Not Recovered/Not Resolved]
